FAERS Safety Report 4414470-6 (Version None)
Quarter: 2004Q3

REPORT INFORMATION
  Report Type: 
  Country: None (occurrence: None)
  Receive Date: 20040702
  Receipt Date: 20030716
  Transmission Date: 20050211
  Serious: Yes (Death)
  Sender: FDA-Public Use
  Company Number: 325118

PATIENT
  Age: 22 Year
  Sex: Male

DRUGS (7)
  1. CLONAZEPAM [Suspect]
     Dosage: ORAL
     Route: 048
     Dates: end: 20010115
  2. OXYCODONE (OXYCODONE) [Suspect]
     Dosage: ORAL
     Route: 048
     Dates: end: 20010115
  3. DESOXYN [Suspect]
     Dosage: ORAL
     Route: 048
     Dates: end: 20010615
  4. DIPHENHYDRAMINE HCL [Suspect]
     Dosage: ORAL
     Route: 048
  5. HYDROXYZINE [Suspect]
     Dosage: ORAL
     Route: 048
  6. AMPHETAMINE SULFATE [Suspect]
     Dosage: ORAL
     Route: 048
  7. HYDROCODONE BITARTRATE [Suspect]
     Dosage: ORAL
     Route: 048

REACTIONS (2)
  - DRUG TOXICITY [None]
  - INTENTIONAL MISUSE [None]
